FAERS Safety Report 8668163 (Version 2)
Quarter: 2012Q4

REPORT INFORMATION
  Report Type: 
  Country: US (occurrence: US)
  Receive Date: 20120717
  Receipt Date: 20121116
  Transmission Date: 20130627
  Serious: Yes (Hospitalization, Other)
  Sender: FDA-Public Use
  Company Number: US-BAYER-2012-070219

PATIENT
  Age: 47 Year
  Sex: Female
  Weight: 65.76 kg

DRUGS (10)
  1. OCELLA [Suspect]
     Indication: CONTRACEPTION
     Dosage: UNK
     Dates: start: 200903, end: 200907
  2. YASMIN [Suspect]
     Indication: CONTRACEPTION
     Dosage: UNK
     Dates: start: 200503, end: 200710
  3. YAZ [Suspect]
     Indication: CONTRACEPTION
     Dosage: UNK
     Dates: start: 200801, end: 201005
  4. TYLENOL [Concomitant]
     Indication: PAIN
     Dosage: as needed
  5. ADVIL [Concomitant]
     Indication: PAIN
     Dosage: as needed
  6. PROAIR HFA [Concomitant]
     Dosage: UNK
     Dates: start: 1999
  7. BUPROPION [Concomitant]
     Indication: DEPRESSION
     Dosage: UNK
     Dates: start: 2002
  8. WELLBUTRIN XL [Concomitant]
     Dosage: 300 mg, UNK
  9. APAP W/CODEINE [Concomitant]
  10. PROMETHAZINE [Concomitant]
     Dosage: 25 mg, UNK

REACTIONS (5)
  - Cholecystitis [None]
  - Injury [None]
  - Pain [None]
  - Pain [None]
  - Biliary dyskinesia [None]
